FAERS Safety Report 13510200 (Version 2)
Quarter: 2017Q3

REPORT INFORMATION
  Report Type: Report from Study
  Country: CA (occurrence: CA)
  Receive Date: 20170503
  Receipt Date: 20170720
  Transmission Date: 20171127
  Serious: Yes (Other)
  Sender: FDA-Public Use
  Company Number: CA-REGENERON PHARMACEUTICALS, INC.-2017-15124

PATIENT

DRUGS (1)
  1. EYLEA [Suspect]
     Active Substance: AFLIBERCEPT
     Indication: DIABETIC RETINAL OEDEMA
     Dosage: 40MG/ML - 2MG/0.05ML
     Dates: start: 20170420

REACTIONS (3)
  - Vitreous floaters [Unknown]
  - Retinal haemorrhage [Unknown]
  - Eye haemorrhage [Unknown]
